FAERS Safety Report 8954630 (Version 1)
Quarter: 2012Q4

REPORT INFORMATION
  Report Type: 
  Country: US (occurrence: US)
  Receive Date: 20121207
  Receipt Date: 20121207
  Transmission Date: 20130627
  Serious: Yes (Other)
  Sender: FDA-Public Use
  Company Number: US-INCYTE CORPORATION-2012IN001665

PATIENT
  Sex: Male

DRUGS (3)
  1. JAKAFI [Suspect]
     Indication: MYELODYSPLASTIC SYNDROME
     Dosage: 15 mg, bid
     Route: 048
     Dates: start: 20120301
  2. REVLIMID [Suspect]
     Indication: MYELODYSPLASTIC SYNDROME
     Dosage: 5 mg daily for 21 days, every 28 days
     Route: 048
     Dates: start: 20120806, end: 20120812
  3. REVLIMID [Suspect]
     Dosage: 5 mg, qd
     Route: 048
     Dates: start: 201210

REACTIONS (6)
  - Rash generalised [Recovered/Resolved]
  - Infection [Unknown]
  - Vomiting [Unknown]
  - Pruritus [Recovered/Resolved]
  - Oedema peripheral [Unknown]
  - Contusion [None]
